FAERS Safety Report 4734351-8 (Version None)
Quarter: 2005Q3

REPORT INFORMATION
  Report Type: 
  Country: None (occurrence: None)
  Receive Date: 20050802
  Receipt Date: 20050720
  Transmission Date: 20060218
  Serious: Yes (Hospitalization)
  Sender: FDA-Public Use
  Company Number: 2005105658

PATIENT
  Age: 86 Year
  Sex: Male
  Weight: 63.5036 kg

DRUGS (10)
  1. DETROL LA [Suspect]
     Indication: MICTURITION URGENCY
     Dosage: 4 MG (4 MG, 1 IN 1 D), ORAL
     Route: 048
     Dates: start: 20050101
  2. COUMADIN [Suspect]
     Indication: ILL-DEFINED DISORDER
     Dates: start: 20050101, end: 20050101
  3. ELAVIL [Concomitant]
  4. LANTUS [Concomitant]
  5. RESTORIL [Concomitant]
  6. LISINOPRIL (LINISOPRIL) [Concomitant]
  7. TOPROL (METOPROLOL) [Concomitant]
  8. ALDACTONE [Concomitant]
  9. LASIX [Concomitant]
  10. POTASSIUM CHLORIDE [Concomitant]

REACTIONS (4)
  - DEHYDRATION [None]
  - DRY MOUTH [None]
  - DYSKINESIA [None]
  - RASH MACULAR [None]
